FAERS Safety Report 6575467-3 (Version None)
Quarter: 2010Q1

REPORT INFORMATION
  Report Type: 
  Country: None (occurrence: None)
  Receive Date: 20100209
  Receipt Date: 20100202
  Transmission Date: 20100710
  Serious: Yes (Death, Other)
  Sender: FDA-Public Use
  Company Number: JP-PFIZER INC-2010014710

PATIENT
  Age: 45 Year
  Sex: Male
  Weight: 52.4 kg

DRUGS (8)
  1. SUNITINIB MALATE [Suspect]
     Indication: RENAL CELL CARCINOMA
     Dosage: 37.5 MG, 1X/DAY
     Route: 048
     Dates: start: 20091106, end: 20091118
  2. ZANTAC [Concomitant]
     Route: 048
     Dates: end: 20091118
  3. CINACALCET HYDROCHLORIDE [Concomitant]
     Route: 048
     Dates: end: 20091118
  4. NORVASC [Concomitant]
     Route: 048
     Dates: end: 20091118
  5. PREDONINE [Concomitant]
     Route: 048
     Dates: end: 20091118
  6. TAKEPRON [Concomitant]
     Route: 048
     Dates: end: 20091118
  7. NAIXAN [Concomitant]
     Route: 048
     Dates: end: 20091118
  8. SELBEX [Concomitant]
     Route: 048
     Dates: end: 20091118

REACTIONS (2)
  - DEATH [None]
  - WHITE BLOOD CELL COUNT DECREASED [None]
